FAERS Safety Report 21175679 (Version 2)
Quarter: 2022Q3

REPORT INFORMATION
  Report Type: Spontaneous
  Country: US (occurrence: US)
  Receive Date: 20220805
  Receipt Date: 20220817
  Transmission Date: 20221026
  Serious: No
  Sender: FDA-Public Use
  Company Number: US-PFIZER INC-202201037913

PATIENT
  Age: 70 Year
  Sex: Female

DRUGS (1)
  1. NICOTROL [Suspect]
     Active Substance: NICOTINE
     Indication: Smoking cessation therapy
     Dosage: 10 MG (168 COUNT FOR 1 MONTH)

REACTIONS (1)
  - Drug ineffective [Unknown]
